FAERS Safety Report 18478804 (Version 3)
Quarter: 2020Q4

REPORT INFORMATION
  Report Type: Spontaneous
  Country: US (occurrence: US)
  Receive Date: 20201109
  Receipt Date: 20201123
  Transmission Date: 20210114
  Serious: Yes (Death, Hospitalization)
  Sender: FDA-Public Use
  Company Number: US-ABBVIE-20K-163-3643256-00

PATIENT
  Sex: Male
  Weight: 88.98 kg

DRUGS (3)
  1. ATROPINE. [Concomitant]
     Active Substance: ATROPINE
     Indication: PRODUCT USED FOR UNKNOWN INDICATION
     Dosage: 1% SOLUTION,1-2 DROPS SUBLINGUALLY Q4 HOURS AS NEEDED.
  2. IMBRUVICA [Suspect]
     Active Substance: IBRUTINIB
     Indication: CHRONIC LYMPHOCYTIC LEUKAEMIA
     Route: 048
  3. IMBRUVICA [Suspect]
     Active Substance: IBRUTINIB
     Route: 048
     Dates: start: 20180214, end: 20200521

REACTIONS (3)
  - Dyspnoea [Unknown]
  - Neoplasm malignant [Fatal]
  - Failure to thrive [Unknown]
